FAERS Safety Report 25261407 (Version 2)
Quarter: 2025Q3

REPORT INFORMATION
  Report Type: Report from Study
  Country: GB (occurrence: GB)
  Receive Date: 20250501
  Receipt Date: 20250810
  Transmission Date: 20251020
  Serious: Yes (Death)
  Sender: ALEXION PHARMACEUTICALS
  Company Number: GB-AstraZeneca-CH-00859055A

PATIENT
  Age: 72 Year
  Sex: Female

DRUGS (1)
  1. BENRALIZUMAB [Suspect]
     Active Substance: BENRALIZUMAB
     Indication: Asthma
     Dates: start: 202305, end: 202504

REACTIONS (1)
  - Death [Fatal]

NARRATIVE: CASE EVENT DATE: 20250426
